FAERS Safety Report 8967189 (Version 1)
Quarter: 2012Q4

REPORT INFORMATION
  Report Type: 
  Country: US (occurrence: US)
  Receive Date: 20121217
  Receipt Date: 20121217
  Transmission Date: 20130627
  Serious: No
  Sender: FDA-Public Use
  Company Number: US-BAYER-2012-131095

PATIENT
  Age: 57 Year
  Sex: Male

DRUGS (12)
  1. LEVITRA [Suspect]
     Indication: SEXUAL DYSFUNCTION
     Dosage: 20 mg, PRN
     Route: 048
     Dates: start: 201211
  2. METFORMIN [Concomitant]
  3. GABAPENTIN [Concomitant]
  4. LORATADINE [Concomitant]
  5. METOPROLOL [Concomitant]
  6. OMEPRAZOLE [Concomitant]
  7. LOSARTAN [Concomitant]
  8. KLOR-CON [Concomitant]
  9. ATORVASTATIN [Concomitant]
  10. ASPIRIN [Concomitant]
  11. VICODIN [Concomitant]
  12. HYDROCHLORO [Concomitant]

REACTIONS (1)
  - Drug ineffective [None]
